FAERS Safety Report 14686227 (Version 1)
Quarter: 2018Q1

REPORT INFORMATION
  Report Type: Spontaneous
  Country: US (occurrence: US)
  Receive Date: 20180326
  Receipt Date: 20180326
  Transmission Date: 20180509
  Serious: Yes (Life-Threatening)
  Sender: FDA-Public Use
  Company Number: None

PATIENT
  Age: 54 Year
  Sex: Female
  Weight: 103 kg

DRUGS (2)
  1. TOFACITINIB [Suspect]
     Active Substance: TOFACITINIB
     Indication: RHEUMATOID ARTHRITIS
     Dates: start: 20170727, end: 20171121
  2. TOFACITINIB 11 MG PO DAILY [Concomitant]
     Dates: start: 20170720, end: 20171121

REACTIONS (1)
  - Cardiomegaly [None]
